FAERS Safety Report 17914721 (Version 1)
Quarter: 2020Q2

REPORT INFORMATION
  Report Type: Report from Study
  Country: US (occurrence: US)
  Receive Date: 20200618
  Receipt Date: 20200618
  Transmission Date: 20200714
  Serious: Yes (Death)
  Sender: FDA-Public Use
  Company Number: US-EXELIXIS-CABO-20030669

PATIENT
  Sex: Male
  Weight: 64.41 kg

DRUGS (2)
  1. LENVIMA [Concomitant]
     Active Substance: LENVATINIB
  2. CABOMETYX [Suspect]
     Active Substance: CABOZANTINIB S-MALATE
     Indication: RENAL CANCER
     Dosage: 40 MG, QD
     Route: 048

REACTIONS (1)
  - Death [Fatal]
